FAERS Safety Report 23909737 (Version 1)
Quarter: 2024Q2

REPORT INFORMATION
  Report Type: Report from Study
  Country: US (occurrence: None)
  Receive Date: 20240528
  Receipt Date: 20240528
  Transmission Date: 20240716
  Serious: Yes (Other)
  Sender: FDA-Public Use
  Company Number: 2024A120961

PATIENT
  Sex: Female

DRUGS (8)
  1. CALQUENCE [Suspect]
     Active Substance: ACALABRUTINIB
     Indication: Chronic lymphocytic leukaemia
     Route: 048
  2. ATORVASTATIN [Concomitant]
     Active Substance: ATORVASTATIN
  3. VITAMINS [Concomitant]
     Active Substance: VITAMINS
  4. COENZYME Q10 [Concomitant]
     Active Substance: DIETARY SUPPLEMENT\UBIDECARENONE
  5. PEPCID [Concomitant]
     Active Substance: FAMOTIDINE
  6. LORATADINE [Concomitant]
     Active Substance: LORATADINE
  7. MIRALAX [Concomitant]
     Active Substance: POLYETHYLENE GLYCOL 3350
  8. VITAMIN D3 [Concomitant]
     Active Substance: CHOLECALCIFEROL

REACTIONS (3)
  - Nodule [Not Recovered/Not Resolved]
  - Musculoskeletal stiffness [Not Recovered/Not Resolved]
  - Arthralgia [Not Recovered/Not Resolved]
